FAERS Safety Report 8560254-7 (Version None)
Quarter: 2012Q3

REPORT INFORMATION
  Report Type: 
  Country: None (occurrence: None)
  Receive Date: 20120802
  Receipt Date: 20120725
  Transmission Date: 20120928
  Serious: Yes (Other)
  Sender: FDA-Public Use
  Company Number: US-ROCHE-1093094

PATIENT
  Sex: Male

DRUGS (1)
  1. VALCYTE [Suspect]
     Indication: CYTOMEGALOVIRUS INFECTION
     Route: 042

REACTIONS (5)
  - NEOPLASM MALIGNANT [None]
  - PNEUMONIA [None]
  - CARDIAC DISORDER [None]
  - ENCEPHALITIS [None]
  - CARDIAC FAILURE CONGESTIVE [None]
